FAERS Safety Report 20074584 (Version 1)
Quarter: 2021Q4

REPORT INFORMATION
  Report Type: Spontaneous
  Country: DE (occurrence: DE)
  Receive Date: 20211116
  Receipt Date: 20211116
  Transmission Date: 20220303
  Serious: Yes (Other)
  Sender: FDA-Public Use
  Company Number: None

PATIENT
  Age: 39 Year
  Sex: Female
  Weight: 63 kg

DRUGS (4)
  1. QUETIAPINE [Suspect]
     Active Substance: QUETIAPINE
     Indication: Psychotic symptom
     Dosage: 200 [MG/D]/ INITIAL 200 MG DAILY, DOSAGE REDUCED TO 150 MG DAILY
     Route: 048
     Dates: start: 20200820, end: 20210528
  2. L-thyrox 75 [Concomitant]
     Indication: Hypothyroidism
     Dosage: 75 [G/D]
     Route: 048
     Dates: start: 20200820, end: 20210528
  3. FOLIC ACID [Concomitant]
     Active Substance: FOLIC ACID
     Indication: Prophylaxis of neural tube defect
     Dosage: 5 [MG/D]
     Route: 048
     Dates: start: 20200820, end: 20210528
  4. ACTRAPID [Concomitant]
     Active Substance: INSULIN HUMAN
     Indication: Gestational diabetes
     Dosage: 4 [IE/D ]/ VARYING DOSAGE 2 TO 4 INTERN. UNITS DAILY
     Route: 058
     Dates: start: 20210223, end: 20210528

REACTIONS (2)
  - Gestational diabetes [Recovered/Resolved]
  - Exposure during pregnancy [Unknown]
